FAERS Safety Report 20742301 (Version 1)
Quarter: 2022Q2

REPORT INFORMATION
  Report Type: Spontaneous
  Country: US (occurrence: US)
  Receive Date: 20220424
  Receipt Date: 20220424
  Transmission Date: 20220721
  Serious: No
  Sender: FDA-Public Use
  Company Number: US-TEVA-2022-US-2022337

PATIENT
  Sex: Male

DRUGS (1)
  1. LORAZEPAM [Suspect]
     Active Substance: LORAZEPAM

REACTIONS (5)
  - Heart rate increased [Unknown]
  - Insomnia [Unknown]
  - Extra dose administered [Unknown]
  - Adverse drug reaction [Unknown]
  - Adverse event [Unknown]
